FAERS Safety Report 5284788-6 (Version None)
Quarter: 2007Q1

REPORT INFORMATION
  Report Type: 
  Country: None (occurrence: None)
  Receive Date: 20061226
  Receipt Date: 20060509
  Transmission Date: 20070707
  Serious: No
  Sender: FDA-Public Use
  Company Number: 2006S1000129

PATIENT
  Age: 55 Year
  Sex: Female

DRUGS (6)
  1. SORIATANE [Suspect]
     Indication: PSORIASIS
     Dosage: PO
     Route: 048
     Dates: start: 20060101, end: 20060101
  2. PREDNISONE TAB [Concomitant]
  3. PREVACID [Concomitant]
  4. FOLIC ACID [Concomitant]
  5. VITAMIN B-12 [Concomitant]
  6. BACTRIM DS [Concomitant]

REACTIONS (2)
  - ANAEMIA [None]
  - THROMBOCYTOPENIA [None]
